FAERS Safety Report 19378029 (Version 1)
Quarter: 2021Q2

REPORT INFORMATION
  Report Type: Report from Study
  Country: IT (occurrence: IT)
  Receive Date: 20210604
  Receipt Date: 20210604
  Transmission Date: 20210717
  Serious: Yes (Other)
  Sender: FDA-Public Use
  Company Number: IT-AUROBINDO-AUR-APL-2021-023586

PATIENT

DRUGS (7)
  1. VINCRISTINE [Suspect]
     Active Substance: VINCRISTINE
     Indication: BONE SARCOMA
  2. VINCRISTINE [Suspect]
     Active Substance: VINCRISTINE
     Indication: SOFT TISSUE SARCOMA
     Dosage: 1.5 MILLIGRAM/SQ. METER, CYCLICAL (ON DAYS 1 AND 8 OF EACH CYCLE)
     Route: 042
  3. PAZOPANIB [Suspect]
     Active Substance: PAZOPANIB
     Indication: BONE SARCOMA
  4. CEFIXIME. [Concomitant]
     Active Substance: CEFIXIME
     Indication: PROPHYLAXIS AGAINST DIARRHOEA
     Dosage: UNK (ADMINISTERED DURING THE FIRST WEEK OF EACH CYCLE)
     Route: 065
  5. IRINOTECAN [Suspect]
     Active Substance: IRINOTECAN
     Indication: BONE SARCOMA
  6. IRINOTECAN [Suspect]
     Active Substance: IRINOTECAN
     Indication: SOFT TISSUE SARCOMA
     Dosage: 50 MILLIGRAM/SQ. METER, DAILY
     Route: 042
  7. PAZOPANIB [Suspect]
     Active Substance: PAZOPANIB
     Indication: SOFT TISSUE SARCOMA
     Dosage: 450 MILLIGRAM/SQ. METER, ONCE A DAY ((MAXIMUM 600 MG/DAY) PER OS PER 21 DAYS OF EACH CYCLE
     Route: 065

REACTIONS (2)
  - Off label use [Unknown]
  - Hyperbilirubinaemia [Unknown]
